FAERS Safety Report 9203347 (Version 7)
Quarter: 2013Q2

REPORT INFORMATION
  Report Type: Report from Study
  Country: US (occurrence: US)
  Receive Date: 20130402
  Receipt Date: 20130617
  Transmission Date: 20140414
  Serious: Yes (Other)
  Sender: FDA-Public Use
  Company Number: US-JNJFOC-20130318240

PATIENT
  Age: 59 Year
  Sex: Female
  Weight: 36.3 kg

DRUGS (13)
  1. CISAPRIDE [Suspect]
     Indication: GASTROINTESTINAL MOTILITY DISORDER
     Route: 048
     Dates: start: 20130610
  2. CISAPRIDE [Suspect]
     Indication: GASTROINTESTINAL MOTILITY DISORDER
     Route: 048
     Dates: start: 20001229, end: 20130327
  3. CISAPRIDE [Suspect]
     Indication: GASTROOESOPHAGEAL REFLUX DISEASE
     Route: 048
     Dates: start: 20130610
  4. CISAPRIDE [Suspect]
     Indication: GASTROOESOPHAGEAL REFLUX DISEASE
     Route: 048
     Dates: start: 20001229, end: 20130327
  5. CORGARD [Concomitant]
     Indication: MITRAL VALVE PROLAPSE
     Dosage: 8 AM
     Route: 065
  6. THERMOTABS [Concomitant]
     Indication: HYPOTENSION
     Route: 065
  7. CLARITIN D [Concomitant]
     Indication: MULTIPLE ALLERGIES
     Route: 065
  8. PRILOSEC [Concomitant]
     Indication: IMPAIRED GASTRIC EMPTYING
     Dosage: 8 AM
     Route: 065
  9. TYLENOL [Concomitant]
     Indication: MIGRAINE
     Route: 065
  10. ACEPHEN [Concomitant]
     Indication: MIGRAINE
     Route: 065
  11. ADVIL [Concomitant]
     Indication: MIGRAINE
     Route: 065
  12. CALCITRIOL [Concomitant]
     Indication: MIGRAINE
     Route: 065
     Dates: start: 200911
  13. CALCITRIOL [Concomitant]
     Indication: MIGRAINE
     Route: 065
     Dates: start: 200612

REACTIONS (1)
  - Electrocardiogram QT prolonged [Recovered/Resolved]
